FAERS Safety Report 4986929-4 (Version None)
Quarter: 2006Q2

REPORT INFORMATION
  Report Type: 
  Country: None (occurrence: None)
  Receive Date: 20060501
  Receipt Date: 20060420
  Transmission Date: 20061013
  Serious: Yes (Hospitalization)
  Sender: FDA-Public Use
  Company Number: 2006SE02305

PATIENT
  Age: 53 Year
  Sex: Female

DRUGS (2)
  1. ZOMIG [Suspect]
     Indication: MIGRAINE WITHOUT AURA
     Route: 048
     Dates: start: 20060308
  2. ZOMIG [Suspect]
     Route: 045
     Dates: start: 20060308

REACTIONS (2)
  - CEREBRAL INFARCTION [None]
  - LIPIDS INCREASED [None]
